FAERS Safety Report 12419504 (Version 1)
Quarter: 2016Q2

REPORT INFORMATION
  Report Type: Spontaneous
  Country: US (occurrence: None)
  Receive Date: 20160527
  Receipt Date: 20160527
  Transmission Date: 20160815
  Serious: Yes (Hospitalization)
  Sender: FDA-Public Use
  Company Number: None

PATIENT
  Age: 72 Year
  Sex: Male
  Weight: 119 kg

DRUGS (2)
  1. CIPROFLOXACIN. [Suspect]
     Active Substance: CIPROFLOXACIN
     Indication: OSTEOMYELITIS
     Dosage: 1 TAB BID PO
     Route: 048
     Dates: start: 20151104, end: 20151212
  2. DOXYCYCLINE. [Suspect]
     Active Substance: DOXYCYCLINE
     Indication: OSTEOMYELITIS
     Dosage: 1 TAB BID PO
     Route: 048
     Dates: start: 20151104, end: 20151212

REACTIONS (3)
  - Acute kidney injury [None]
  - Tubulointerstitial nephritis [None]
  - Rash [None]

NARRATIVE: CASE EVENT DATE: 20151212
